FAERS Safety Report 6731288-X (Version None)
Quarter: 2010Q2

REPORT INFORMATION
  Report Type: 
  Country: None (occurrence: None)
  Receive Date: 20100517
  Receipt Date: 20100517
  Transmission Date: 20101027
  Serious: Yes (Life-Threatening, Hospitalization, Disabling, Other)
  Sender: FDA-Public Use
  Company Number: None

PATIENT
  Age: 42 Year
  Sex: Male
  Weight: 68.0396 kg

DRUGS (5)
  1. SEROQUEL XR [Suspect]
     Indication: ANGER
     Dosage: 600MG NIGHTLY PO
     Route: 048
     Dates: start: 20100425, end: 20100516
  2. SEROQUEL XR [Suspect]
     Indication: BIPOLAR DISORDER
     Dosage: 600MG NIGHTLY PO
     Route: 048
     Dates: start: 20100425, end: 20100516
  3. SEROQUEL XR [Suspect]
     Indication: MAJOR DEPRESSION
     Dosage: 600MG NIGHTLY PO
     Route: 048
     Dates: start: 20100425, end: 20100516
  4. SEROQUEL XR [Suspect]
     Indication: MANIA
     Dosage: 600MG NIGHTLY PO
     Route: 048
     Dates: start: 20100425, end: 20100516
  5. SEROQUEL XR [Suspect]
     Indication: MOOD SWINGS
     Dosage: 600MG NIGHTLY PO
     Route: 048
     Dates: start: 20100425, end: 20100516

REACTIONS (10)
  - AMNESIA [None]
  - DYSKINESIA [None]
  - DYSPHEMIA [None]
  - FALL [None]
  - JOINT SPRAIN [None]
  - LACERATION [None]
  - LIMB INJURY [None]
  - POST-TRAUMATIC PAIN [None]
  - TIC [None]
  - TREMOR [None]
